FAERS Safety Report 16925068 (Version 1)
Quarter: 2019Q4

REPORT INFORMATION
  Report Type: Report from Study
  Country: US (occurrence: US)
  Receive Date: 20191016
  Receipt Date: 20191016
  Transmission Date: 20200122
  Serious: Yes (Other)
  Sender: FDA-Public Use
  Company Number: PHHY2018US058592

PATIENT
  Sex: Male
  Weight: 27.6 kg

DRUGS (4)
  1. KYMRIAH [Suspect]
     Active Substance: TISAGENLECLEUCEL
     Indication: B-CELL TYPE ACUTE LEUKAEMIA
     Dosage: UNK
     Route: 065
     Dates: start: 20180122
  2. FLUDARABINE [Concomitant]
     Active Substance: FLUDARABINE PHOSPHATE
     Indication: CD4 LYMPHOCYTES DECREASED
     Route: 065
  3. CYCLOPHOSPHAMIDE. [Concomitant]
     Active Substance: CYCLOPHOSPHAMIDE
     Indication: CD4 LYMPHOCYTES DECREASED
     Route: 065
  4. INOTUZUMAB [Concomitant]
     Active Substance: INOTUZUMAB OZOGAMICIN
     Indication: CD4 LYMPHOCYTES DECREASED
     Route: 065

REACTIONS (4)
  - B-cell aplasia [Unknown]
  - Acute lymphocytic leukaemia recurrent [Unknown]
  - Drug level decreased [Unknown]
  - Pyrexia [Unknown]
